FAERS Safety Report 8900775 (Version 2)
Quarter: 2012Q4

REPORT INFORMATION
  Report Type: 
  Country: US (occurrence: US)
  Receive Date: 20121109
  Receipt Date: 20121205
  Transmission Date: 20130627
  Serious: Yes (Other)
  Sender: FDA-Public Use
  Company Number: US-UCBSA-070411

PATIENT
  Age: 17 Year
  Sex: Male
  Weight: 58.96 kg

DRUGS (2)
  1. CIMZIA [Suspect]
     Indication: CROHN^S DISEASE
     Dates: start: 201103
  2. PNEUMOCOCCAL VACCINE POLYVALENT NOS [Suspect]
     Dosage: VACCINATION
     Dates: start: 20121105, end: 20121105

REACTIONS (1)
  - Anaphylactic reaction [Recovered/Resolved]
